FAERS Safety Report 8815954 (Version 1)
Quarter: 2012Q4

REPORT INFORMATION
  Report Type: 
  Country: US (occurrence: US)
  Receive Date: 20120928
  Receipt Date: 20120928
  Transmission Date: 20130627
  Serious: Yes (Hospitalization)
  Sender: FDA-Public Use
  Company Number: US-ROCHE-1126319

PATIENT
  Sex: Female

DRUGS (8)
  1. AVASTIN [Suspect]
     Indication: BREAST CANCER FEMALE
     Route: 065
  2. AVASTIN [Suspect]
     Indication: HAEMATOLOGICAL MALIGNANCY
  3. HERCEPTIN [Suspect]
     Indication: PRODUCT USED FOR UNKNOWN INDICATION
     Route: 065
  4. DOXIL (UNITED STATES) [Concomitant]
  5. TOPOTECAN [Concomitant]
  6. PERIFOSINE [Concomitant]
  7. ZOMETA [Concomitant]
  8. ABRAXANE [Concomitant]

REACTIONS (6)
  - Mouth ulceration [Unknown]
  - Dehydration [Unknown]
  - Presyncope [Unknown]
  - Metastases to bone [Unknown]
  - Disease progression [Unknown]
  - Neck mass [Unknown]
